FAERS Safety Report 9046309 (Version 2)
Quarter: 2013Q1

REPORT INFORMATION
  Report Type: Report from Study
  Country: CH (occurrence: CH)
  Receive Date: 20130201
  Receipt Date: 20130226
  Transmission Date: 20140127
  Serious: Yes (Hospitalization)
  Sender: FDA-Public Use
  Company Number: CH-BAYER-2013-009959

PATIENT
  Age: 74 Year
  Sex: Male

DRUGS (3)
  1. SORAFENIB (RAF KINASE INHIBITOR) [Suspect]
     Indication: HEPATOCELLULAR CARCINOMA
     Dosage: 400 MG, BID
     Route: 048
     Dates: start: 20130108, end: 20130124
  2. EVEROLIMUS [Suspect]
     Indication: HEPATOCELLULAR CARCINOMA
     Dosage: 5MG DAILY
     Route: 048
     Dates: start: 20130108, end: 20130117
  3. ANTI-DIABETIC [Concomitant]

REACTIONS (4)
  - Urinary tract infection [None]
  - Hyperglycaemia [None]
  - Thrombocytopenia [None]
  - Pyrexia [None]
